FAERS Safety Report 18786216 (Version 2)
Quarter: 2022Q1

REPORT INFORMATION
  Report Type: Spontaneous
  Country: DE (occurrence: DE)
  Receive Date: 20210126
  Receipt Date: 20220125
  Transmission Date: 20220423
  Serious: Yes (Congenital Anomaly)
  Sender: FDA-Public Use
  Company Number: DE-NOVARTISPH-NVSC2021DE010176

PATIENT
  Sex: Female

DRUGS (4)
  1. GABAPENTIN [Suspect]
     Active Substance: GABAPENTIN
     Indication: Foetal exposure during pregnancy
     Dosage: MATERNAL DOSE: 900 [MG/D (300-0-600 MG) ]
     Route: 064
     Dates: start: 20190615, end: 20190716
  2. ESCITALOPRAM [Suspect]
     Active Substance: ESCITALOPRAM OXALATE
     Indication: Foetal exposure during pregnancy
     Dosage: MATERNAL DOSE: 5 [MG/D ]
     Route: 064
     Dates: start: 20190615, end: 20190716
  3. EUTHYROX [Concomitant]
     Active Substance: LEVOTHYROXINE SODIUM
     Indication: Foetal exposure during pregnancy
     Dosage: MATERNAL DOSE: 150 [?G/D (BIS 112 ?G/D) ]
     Route: 064
     Dates: start: 20190615, end: 20190910
  4. PROGESTERONE [Concomitant]
     Active Substance: PROGESTERONE
     Indication: Foetal exposure during pregnancy
     Dosage: MATERNAL DOSE: 200 [MG/D (100-0-100) ]
     Route: 064
     Dates: start: 20190730, end: 20190801

REACTIONS (4)
  - Congenital absence of vertebra [Unknown]
  - Gastroschisis [Unknown]
  - Subdural hygroma [Unknown]
  - Foetal exposure during pregnancy [Unknown]
